FAERS Safety Report 4615196-6 (Version None)
Quarter: 2005Q1

REPORT INFORMATION
  Report Type: 
  Country: None (occurrence: None)
  Receive Date: 20050322
  Receipt Date: 20050315
  Transmission Date: 20050727
  Serious: Yes (Other)
  Sender: FDA-Public Use
  Company Number: PHBS2005BR03781

PATIENT
  Age: 77 Year
  Sex: Female

DRUGS (3)
  1. FEMARA [Suspect]
     Indication: BREAST CANCER
  2. AMARYL [Suspect]
     Indication: BREAST CANCER
  3. LEXOTAN [Concomitant]

REACTIONS (3)
  - AMNESIA [None]
  - CEREBRAL ATROPHY [None]
  - LIBIDO DECREASED [None]
